FAERS Safety Report 5927426-9 (Version None)
Quarter: 2008Q4

REPORT INFORMATION
  Report Type: 
  Country: None (occurrence: None)
  Receive Date: 20081022
  Receipt Date: 20081022
  Transmission Date: 20090506
  Serious: No
  Sender: FDA-Public Use
  Company Number: None

PATIENT
  Age: 51 Year
  Sex: Female
  Weight: 46.7205 kg

DRUGS (1)
  1. CORTISONE ACETATE TAB [Suspect]

REACTIONS (10)
  - CONVULSION [None]
  - EYE DISORDER [None]
  - FALL [None]
  - GASTRIC HAEMORRHAGE [None]
  - HEADACHE [None]
  - JOINT SWELLING [None]
  - OCULAR HYPERAEMIA [None]
  - SCAR [None]
  - SKIN HYPERPIGMENTATION [None]
  - VOMITING [None]
